FAERS Safety Report 7201526-8 (Version None)
Quarter: 2010Q4

REPORT INFORMATION
  Report Type: 
  Country: None (occurrence: None)
  Receive Date: 20101229
  Receipt Date: 20101220
  Transmission Date: 20110411
  Serious: Yes (Hospitalization)
  Sender: FDA-Public Use
  Company Number: FR-ASTRAZENECA-2010SE59933

PATIENT
  Age: 88 Year
  Sex: Female

DRUGS (3)
  1. NIFEDIPINE [Suspect]
     Indication: HYPERTENSION
     Route: 048
     Dates: start: 20040101, end: 20101015
  2. PERINDOPRIL ERBUMINE [Suspect]
     Indication: HYPERTENSION
     Route: 048
     Dates: start: 20040101, end: 20101015
  3. FLUDEX [Suspect]
     Indication: HYPERTENSION
     Route: 048
     Dates: start: 20060101, end: 20101015

REACTIONS (1)
  - TOXIC SKIN ERUPTION [None]
